FAERS Safety Report 10223997 (Version 1)
Quarter: 2014Q2

REPORT INFORMATION
  Report Type: Spontaneous
  Country: BR (occurrence: BR)
  Receive Date: 20140609
  Receipt Date: 20140609
  Transmission Date: 20141212
  Serious: Yes (Hospitalization)
  Sender: FDA-Public Use
  Company Number: BR-PFIZER INC-2014152438

PATIENT
  Age: 83 Year
  Sex: Female
  Weight: 54 kg

DRUGS (2)
  1. XALATAN [Suspect]
     Indication: GLAUCOMA
     Dosage: 1 DROP IN THE LEFT EYE (1.5 UG), 2X/DAY
     Route: 047
     Dates: start: 201405
  2. PROFENID [Concomitant]
     Dosage: UNK

REACTIONS (7)
  - Feeding disorder [Unknown]
  - Feeling abnormal [Unknown]
  - Malaise [Unknown]
  - Blood pressure decreased [Unknown]
  - Syncope [Unknown]
  - Face injury [Unknown]
  - Off label use [Not Recovered/Not Resolved]
